FAERS Safety Report 14657571 (Version 1)
Quarter: 2018Q1

REPORT INFORMATION
  Report Type: Spontaneous
  Country: FR (occurrence: FR)
  Receive Date: 20180319
  Receipt Date: 20180319
  Transmission Date: 20180509
  Serious: Yes (Other)
  Sender: FDA-Public Use
  Company Number: FR-MERCK KGAA-2044107

PATIENT
  Age: 47 Year
  Sex: Female

DRUGS (1)
  1. NOVOTHYROX [Suspect]
     Active Substance: LEVOTHYROXINE SODIUM
     Indication: PRODUCT USED FOR UNKNOWN INDICATION

REACTIONS (23)
  - Dizziness [None]
  - Tendonitis [None]
  - Impaired driving ability [None]
  - Mood swings [None]
  - Gait disturbance [None]
  - Dysgraphia [None]
  - Memory impairment [None]
  - Reading disorder [None]
  - Disturbance in attention [None]
  - Migraine [None]
  - Loss of personal independence in daily activities [None]
  - Blood alkaline phosphatase increased [None]
  - Blood thyroid stimulating hormone decreased [Not Recovered/Not Resolved]
  - Muscle spasms [None]
  - Palpitations [None]
  - Fatigue [None]
  - Myalgia [None]
  - Hypoaesthesia [None]
  - Weight increased [None]
  - Libido decreased [None]
  - Thyroglobulin decreased [None]
  - C-reactive protein increased [Recovered/Resolved]
  - Insomnia [None]

NARRATIVE: CASE EVENT DATE: 20170215
